FAERS Safety Report 14496359 (Version 5)
Quarter: 2018Q3

REPORT INFORMATION
  Report Type: Report from Study
  Country: US (occurrence: US)
  Receive Date: 20180207
  Receipt Date: 20180912
  Transmission Date: 20181010
  Serious: No
  Sender: FDA-Public Use
  Company Number: PHEH2018US004883

PATIENT
  Sex: Male
  Weight: 84 kg

DRUGS (2)
  1. ENTRESTO [Suspect]
     Active Substance: SACUBITRIL\VALSARTAN
     Dosage: 24/26(SACUBITRIL 24MG AND VALSARTAN 26MG), BID
     Route: 048
  2. ENTRESTO [Suspect]
     Active Substance: SACUBITRIL\VALSARTAN
     Indication: CARDIAC FAILURE CHRONIC
     Route: 048

REACTIONS (7)
  - Overdose [Unknown]
  - Infection [Unknown]
  - Dyspnoea [Unknown]
  - Balance disorder [Unknown]
  - Stress [Unknown]
  - Peripheral swelling [Unknown]
  - Joint swelling [Unknown]
